FAERS Safety Report 18062511 (Version 1)
Quarter: 2020Q3

REPORT INFORMATION
  Report Type: Spontaneous
  Country: US (occurrence: US)
  Receive Date: 20200723
  Receipt Date: 20200723
  Transmission Date: 20201103
  Serious: No
  Sender: FDA-Public Use
  Company Number: US-IGSA-SR10008869

PATIENT
  Age: 53 Year
  Sex: Female
  Weight: 98 kg

DRUGS (5)
  1. GAMUNEX?C [Suspect]
     Active Substance: HUMAN IMMUNOGLOBULIN G
     Indication: AUTOIMMUNE HAEMOLYTIC ANAEMIA
     Dosage: 10 G, Q.M.T.
     Route: 042
     Dates: start: 20180701
  2. FOLIC ACID. [Concomitant]
     Active Substance: FOLIC ACID
     Indication: PREMEDICATION
  3. STEROIDS [Concomitant]
     Active Substance: UNSPECIFIED INGREDIENT
     Indication: PREMEDICATION
     Dosage: 40 MG, UNK
     Dates: end: 201901
  4. VITAMIN B12 [Concomitant]
     Active Substance: CYANOCOBALAMIN
     Indication: PREMEDICATION
  5. TOXINS AND TOXOIDS [Concomitant]
     Dosage: UNK
     Dates: start: 201905

REACTIONS (6)
  - Hypoaesthesia [Not Recovered/Not Resolved]
  - Pyrexia [Not Recovered/Not Resolved]
  - Headache [Not Recovered/Not Resolved]
  - Nausea [Not Recovered/Not Resolved]
  - Hyperhidrosis [Not Recovered/Not Resolved]
  - Feeling hot [Not Recovered/Not Resolved]

NARRATIVE: CASE EVENT DATE: 201807
